FAERS Safety Report 19251306 (Version 2)
Quarter: 2021Q2

REPORT INFORMATION
  Report Type: Spontaneous
  Country: IT (occurrence: IT)
  Receive Date: 20210512
  Receipt Date: 20210519
  Transmission Date: 20210717
  Serious: Yes (Hospitalization, Other)
  Sender: FDA-Public Use
  Company Number: IT-PFIZER INC-2021496869

PATIENT
  Age: 73 Year
  Sex: Male

DRUGS (15)
  1. MERREM [Suspect]
     Active Substance: MEROPENEM
     Dosage: UNK
     Dates: start: 20210421
  2. LEVOFLOXACIN. [Suspect]
     Active Substance: LEVOFLOXACIN
     Dosage: UNK
     Dates: start: 20210330, end: 20210404
  3. BENTELAN [Concomitant]
     Active Substance: BETAMETHASONE SODIUM PHOSPHATE
     Dosage: UNK
  4. DECAPEPTYL [TRIPTORELIN] [Concomitant]
     Active Substance: TRIPTORELIN
     Dosage: UNK
  5. TATIONIL [Concomitant]
     Dosage: UNK
  6. ZIRTEC [Concomitant]
     Active Substance: CETIRIZINE HYDROCHLORIDE
     Dosage: UNK
  7. ZYLORIC [Suspect]
     Active Substance: ALLOPURINOL
     Dosage: UNK
     Dates: start: 20210401, end: 20210410
  8. ROCEFIN [Suspect]
     Active Substance: CEFTRIAXONE SODIUM
     Dosage: UNK
     Dates: start: 20210413, end: 20210417
  9. ZETAMICIN [Suspect]
     Active Substance: NETILMICIN SULFATE
     Dosage: UNK
     Route: 030
     Dates: start: 20210330, end: 20210404
  10. CLEXANE [Concomitant]
     Active Substance: ENOXAPARIN SODIUM
     Dosage: UNK
  11. ANTRA [OMEPRAZOLE] [Concomitant]
     Active Substance: OMEPRAZOLE
     Dosage: UNK
  12. LASIX [Concomitant]
     Active Substance: FUROSEMIDE
     Dosage: UNK
  13. DIAMICRON [Concomitant]
     Active Substance: GLICLAZIDE
     Dosage: UNK
  14. RETACRIT [Concomitant]
     Active Substance: EPOETIN ALFA-EPBX
     Dosage: UNK
  15. ALBUMIN BAXTER [Concomitant]
     Dosage: UNK

REACTIONS (4)
  - Stevens-Johnson syndrome [Recovering/Resolving]
  - Rash maculo-papular [Recovering/Resolving]
  - Diarrhoea [Recovering/Resolving]
  - Toxic epidermal necrolysis [Recovering/Resolving]
